FAERS Safety Report 26002223 (Version 1)
Quarter: 2025Q4

REPORT INFORMATION
  Report Type: Report from Study
  Country: CA (occurrence: CA)
  Receive Date: 20251105
  Receipt Date: 20251105
  Transmission Date: 20260117
  Serious: Yes (Other)
  Sender: GILEAD
  Company Number: CA-GSK-CA2025140240

PATIENT
  Age: 79 Year
  Sex: Female

DRUGS (1)
  1. AMBRISENTAN [Suspect]
     Active Substance: AMBRISENTAN
     Indication: Pulmonary hypertension
     Dosage: 10 MG, QD
     Route: 065
     Dates: start: 20210510

REACTIONS (9)
  - Knee arthroplasty [Unknown]
  - Knee operation [Unknown]
  - Insomnia [Unknown]
  - Nasal congestion [Unknown]
  - Arthralgia [Unknown]
  - Fatigue [Unknown]
  - Snoring [Unknown]
  - Arthritis [Unknown]
  - Dry mouth [Unknown]

NARRATIVE: CASE EVENT DATE: 20251001
